FAERS Safety Report 16102783 (Version 2)
Quarter: 2019Q4

REPORT INFORMATION
  Report Type: Report from Study
  Country: US (occurrence: US)
  Receive Date: 20190321
  Receipt Date: 20191218
  Transmission Date: 20200122
  Serious: Yes (Other)
  Sender: FDA-Public Use
  Company Number: US-BEH-2019100426

PATIENT
  Age: 48 Year
  Sex: Female

DRUGS (2)
  1. HIZENTRA [Suspect]
     Active Substance: HUMAN IMMUNOGLOBULIN G
     Dosage: 40 GRAM, QW
     Route: 058
     Dates: start: 201610
  2. HIZENTRA [Suspect]
     Active Substance: HUMAN IMMUNOGLOBULIN G
     Indication: CHRONIC INFLAMMATORY DEMYELINATING POLYRADICULONEUROPATHY
     Dosage: 0.2 G/ML
     Route: 058
     Dates: start: 201610

REACTIONS (3)
  - Pulmonary embolism [Unknown]
  - Cholecystectomy [Unknown]
  - Embolism [Not Recovered/Not Resolved]

NARRATIVE: CASE EVENT DATE: 2019
